FAERS Safety Report 7824064-8 (Version None)
Quarter: 2011Q4

REPORT INFORMATION
  Report Type: 
  Country: None (occurrence: None)
  Receive Date: 20111019
  Receipt Date: 20111012
  Transmission Date: 20120403
  Serious: Yes (Hospitalization)
  Sender: FDA-Public Use
  Company Number: PHHY2011US64690

PATIENT
  Sex: Female
  Weight: 80.4 kg

DRUGS (1)
  1. EXJADE [Suspect]
     Indication: ANAEMIA OF CHRONIC DISEASE
     Dosage: 1500 MG, UNK
     Route: 048
     Dates: start: 20100820

REACTIONS (2)
  - PYREXIA [None]
  - VIRAL INFECTION [None]
